FAERS Safety Report 5804946-9 (Version None)
Quarter: 2008Q3

REPORT INFORMATION
  Report Type: 
  Country: None (occurrence: None)
  Receive Date: 20080709
  Receipt Date: 20080630
  Transmission Date: 20090109
  Serious: No
  Sender: FDA-Public Use
  Company Number: JP-PFIZER INC-2007092748

PATIENT
  Sex: Female

DRUGS (3)
  1. LIPITOR [Suspect]
     Indication: HYPERCHOLESTEROLAEMIA
     Route: 048
     Dates: start: 20070925, end: 20070928
  2. NORVASC [Concomitant]
     Indication: HYPERTENSION
     Route: 048
     Dates: start: 20070416, end: 20070423
  3. NORVASC [Concomitant]
     Route: 048
     Dates: start: 20070423

REACTIONS (2)
  - DYSAESTHESIA [None]
  - MUSCLE SPASMS [None]
